FAERS Safety Report 10924339 (Version 2)
Quarter: 2015Q2

REPORT INFORMATION
  Report Type: Spontaneous
  Country: US (occurrence: US)
  Receive Date: 20150318
  Receipt Date: 20150524
  Transmission Date: 20150821
  Serious: No
  Sender: FDA-Public Use
  Company Number: US-JNJFOC-20120906291

PATIENT

DRUGS (3)
  1. OMEPRAZOLE. [Interacting]
     Active Substance: OMEPRAZOLE
     Indication: LENNOX-GASTAUT SYNDROME
     Dosage: ON DAYS 17-22
     Route: 065
  2. KETOCONAZOLE. [Suspect]
     Active Substance: KETOCONAZOLE
     Indication: LENNOX-GASTAUT SYNDROME
     Route: 065
  3. CLOBAZAM [Interacting]
     Active Substance: CLOBAZAM
     Indication: LENNOX-GASTAUT SYNDROME
     Dosage: ON DAY 1
     Route: 048

REACTIONS (8)
  - Product use issue [Unknown]
  - Drug interaction [Unknown]
  - Gastrointestinal disorder [Unknown]
  - Rash [Unknown]
  - Headache [Unknown]
  - Nasopharyngitis [Unknown]
  - Arthropod bite [Unknown]
  - Decreased appetite [Unknown]
